FAERS Safety Report 5919907-9 (Version None)
Quarter: 2008Q4

REPORT INFORMATION
  Report Type: 
  Country: None (occurrence: None)
  Receive Date: 20081015
  Receipt Date: 20081006
  Transmission Date: 20090506
  Serious: Yes (Hospitalization)
  Sender: FDA-Public Use
  Company Number: US-AMGEN-US311701

PATIENT
  Sex: Female

DRUGS (2)
  1. ENBREL [Suspect]
     Indication: PSORIATIC ARTHROPATHY
     Dates: start: 20041119
  2. ENBREL [Suspect]
     Indication: PSORIASIS

REACTIONS (3)
  - COUGH [None]
  - NEPHROLITHIASIS [None]
  - SINUSITIS [None]
